FAERS Safety Report 8124713-3 (Version None)
Quarter: 2012Q1

REPORT INFORMATION
  Report Type: 
  Country: None (occurrence: None)
  Receive Date: 20120209
  Receipt Date: 20120201
  Transmission Date: 20120608
  Serious: No
  Sender: FDA-Public Use
  Company Number: US-JNJFOC-20120201051

PATIENT
  Sex: Female
  Weight: 86.18 kg

DRUGS (1)
  1. INVEGA [Suspect]
     Indication: MAJOR DEPRESSION
     Route: 048
     Dates: start: 20080101

REACTIONS (1)
  - BLOOD PROLACTIN INCREASED [None]
